FAERS Safety Report 10607706 (Version 1)
Quarter: 2014Q4

REPORT INFORMATION
  Report Type: Spontaneous
  Country: DE (occurrence: DE)
  Receive Date: 20141125
  Receipt Date: 20141125
  Transmission Date: 20150529
  Serious: Yes (Congenital Anomaly, Other)
  Sender: FDA-Public Use
  Company Number: PHHY2014DE148508

PATIENT
  Sex: Female

DRUGS (2)
  1. FOLSAN [Concomitant]
     Active Substance: FOLIC ACID
     Indication: PROPHYLAXIS OF NEURAL TUBE DEFECT
     Dosage: MOTHER DOSE: 5 MG, QD
     Route: 064
     Dates: start: 20081008, end: 20090201
  2. TEGRETAL [Suspect]
     Active Substance: CARBAMAZEPINE
     Indication: EPILEPSY
     Dosage: MOTHER DOSE: 1000 MG, DAILY (400-0-600) MG/D
     Route: 064
     Dates: start: 20081008, end: 20090628

REACTIONS (7)
  - Atrial septal defect [Unknown]
  - Feeding disorder neonatal [Recovered/Resolved]
  - Eyelid function disorder [Unknown]
  - Dysmorphism [Unknown]
  - Foetal exposure during pregnancy [Unknown]
  - Small for dates baby [Unknown]
  - Hypotonia neonatal [Recovering/Resolving]

NARRATIVE: CASE EVENT DATE: 20090628
